FAERS Safety Report 6567336-X (Version None)
Quarter: 2010Q1

REPORT INFORMATION
  Report Type: 
  Country: None (occurrence: None)
  Receive Date: 20100202
  Receipt Date: 20100121
  Transmission Date: 20100710
  Serious: Yes (Other)
  Sender: FDA-Public Use
  Company Number: PHEH2009US16442

PATIENT
  Sex: Male

DRUGS (10)
  1. EXJADE [Suspect]
     Indication: MYELODYSPLASTIC SYNDROME
     Dosage: 2000 MG, QD
     Route: 048
     Dates: start: 20091027
  2. LISINOPRIL [Concomitant]
  3. METOPROLOL [Concomitant]
  4. GLUCOSAMINE/MSM [Concomitant]
  5. FOLIC ACID [Concomitant]
  6. GEMFIBROZIL [Concomitant]
  7. LASIX [Concomitant]
  8. ASPIRIN [Concomitant]
  9. ALLOPURINOL [Concomitant]
  10. PACERONE [Concomitant]

REACTIONS (4)
  - OPEN WOUND [None]
  - RECTAL HAEMORRHAGE [None]
  - SKIN DISCOLOURATION [None]
  - SKIN HAEMORRHAGE [None]
